FAERS Safety Report 5423642-3 (Version None)
Quarter: 2007Q3

REPORT INFORMATION
  Report Type: 
  Country: None (occurrence: None)
  Receive Date: 20070725
  Receipt Date: 20070104
  Transmission Date: 20080115
  Serious: Yes (Other)
  Sender: FDA-Public Use
  Company Number: US200701001874

PATIENT
  Sex: Male

DRUGS (2)
  1. STRATTERA [Suspect]
     Dosage: 25 MG
  2. WELLBUTRIN [Concomitant]

REACTIONS (1)
  - CONVULSION [None]
